FAERS Safety Report 14159107 (Version 4)
Quarter: 2018Q1

REPORT INFORMATION
  Report Type: Spontaneous
  Country: US (occurrence: US)
  Receive Date: 20171103
  Receipt Date: 20180105
  Transmission Date: 20180508
  Serious: Yes (Other)
  Sender: FDA-Public Use
  Company Number: US-TEVA-821349USA

PATIENT
  Age: 76 Year
  Sex: Female

DRUGS (13)
  1. WARFARIN [Suspect]
     Active Substance: WARFARIN
     Indication: MITRAL VALVE REPLACEMENT
     Dosage: REGIMEN 1. 5 MG MONDAY TO THURSDAY, 6 MG FRIDAY,SATURDAY AND SUNDAY
     Route: 048
     Dates: start: 19990504
  2. WARFARIN [Suspect]
     Active Substance: WARFARIN
     Dosage: REGIMEN 2
     Route: 048
  3. ECOTRIN [Concomitant]
     Active Substance: ASPIRIN
  4. LEVOTHYROXINE. [Concomitant]
     Active Substance: LEVOTHYROXINE
     Dosage: 25 MICROGRAM DAILY;
  5. AMOXICILLIN. [Concomitant]
     Active Substance: AMOXICILLIN
  6. LIPITOR [Concomitant]
     Active Substance: ATORVASTATIN CALCIUM
     Dosage: 20 MILLIGRAM DAILY;
  7. CELEXA [Concomitant]
     Active Substance: CITALOPRAM HYDROBROMIDE
     Dosage: 10 MILLIGRAM DAILY;
     Dates: start: 2005
  8. LISINOPRIL. [Concomitant]
     Active Substance: LISINOPRIL
     Dosage: 2.5 MILLIGRAM DAILY;
  9. VITAMIN B12 [Concomitant]
     Active Substance: CYANOCOBALAMIN
  10. CENTRUM SILVER [Concomitant]
     Active Substance: MINERALS\VITAMINS
  11. ATORVASTATIN [Concomitant]
     Active Substance: ATORVASTATIN
  12. ACETYL SALICYLIC ACID [Concomitant]
     Active Substance: ASPIRIN
     Dosage: 81 MILLIGRAM DAILY;
  13. MYRBETRIQ [Suspect]
     Active Substance: MIRABEGRON
     Indication: POLLAKIURIA
     Dosage: 25 MILLIGRAM DAILY; RECEIVED 7 WEEKS AGO, ABUT 53 OR 54 DOSES
     Route: 048
     Dates: start: 20170810

REACTIONS (2)
  - International normalised ratio increased [Recovered/Resolved]
  - Drug ineffective [Unknown]

NARRATIVE: CASE EVENT DATE: 20170810
